FAERS Safety Report 24890151 (Version 1)
Quarter: 2025Q1

REPORT INFORMATION
  Report Type: Report from Study
  Country: CA (occurrence: CA)
  Receive Date: 20250127
  Receipt Date: 20250127
  Transmission Date: 20250409
  Serious: Yes (Other)
  Sender: MYLAN
  Company Number: CA-MYLANLABS-2025M1006656

PATIENT
  Sex: Male
  Weight: 76 kg

DRUGS (1)
  1. GABAPENTIN [Suspect]
     Active Substance: GABAPENTIN
     Indication: Product used for unknown indication
     Dosage: UNK, TID (THRICE A DAY)
     Route: 048

REACTIONS (3)
  - Neuropathy peripheral [Unknown]
  - Insomnia [Unknown]
  - Drug ineffective [Unknown]
